FAERS Safety Report 5355119-8 (Version None)
Quarter: 2007Q2

REPORT INFORMATION
  Report Type: 
  Country: None (occurrence: None)
  Receive Date: 20070613
  Receipt Date: 20070606
  Transmission Date: 20071010
  Serious: Yes (Other)
  Sender: FDA-Public Use
  Company Number: PHEH2007US08437

PATIENT
  Sex: Female

DRUGS (1)
  1. TEKTURNA [Suspect]
     Indication: HYPERTENSION
     Dosage: 150 MG, QD

REACTIONS (5)
  - ANXIETY [None]
  - CONFUSIONAL STATE [None]
  - RESTLESSNESS [None]
  - TENSION [None]
  - VISUAL DISTURBANCE [None]
